FAERS Safety Report 12967471 (Version 1)
Quarter: 2016Q4

REPORT INFORMATION
  Report Type: Spontaneous
  Country: US (occurrence: US)
  Receive Date: 20161123
  Receipt Date: 20161123
  Transmission Date: 20170207
  Serious: Yes (Hospitalization)
  Sender: FDA-Public Use
  Company Number: US-BEH-2016075458

PATIENT
  Age: 18 Year
  Sex: Male
  Weight: 54.42 kg

DRUGS (9)
  1. LMX                                /00033401/ [Concomitant]
  2. DIPHENHYDRAMINE. [Concomitant]
     Active Substance: DIPHENHYDRAMINE
  3. EPIPEN [Concomitant]
     Active Substance: EPINEPHRINE
  4. SYNTHROID [Concomitant]
     Active Substance: LEVOTHYROXINE SODIUM
  5. CLARITIN [Concomitant]
     Active Substance: LORATADINE
  6. OMEPRAZOLE. [Concomitant]
     Active Substance: OMEPRAZOLE
  7. FOLIC ACID. [Concomitant]
     Active Substance: FOLIC ACID
  8. IRON [Concomitant]
     Active Substance: IRON
  9. HIZENTRA [Suspect]
     Active Substance: HUMAN IMMUNOGLOBULIN G
     Indication: EVANS SYNDROME
     Dosage: 10 G, UNK
     Route: 058
     Dates: start: 20151119

REACTIONS (1)
  - Platelet count decreased [Unknown]

NARRATIVE: CASE EVENT DATE: 201610
